FAERS Safety Report 7286272-7 (Version None)
Quarter: 2011Q1

REPORT INFORMATION
  Report Type: 
  Country: None (occurrence: None)
  Receive Date: 20110210
  Receipt Date: 20110207
  Transmission Date: 20110831
  Serious: Yes (Death, Hospitalization)
  Sender: FDA-Public Use
  Company Number: PHHY2010IL79864

PATIENT
  Sex: Male

DRUGS (1)
  1. SANDOSTATIN LAR [Suspect]
     Indication: CARCINOID SYNDROME
     Dosage: 60 MG, ONCE/SINGLE

REACTIONS (4)
  - ASCITES [None]
  - NEOPLASM MALIGNANT [None]
  - OEDEMA [None]
  - WEIGHT INCREASED [None]
